FAERS Safety Report 11862712 (Version 1)
Quarter: 2015Q4

REPORT INFORMATION
  Report Type: Spontaneous
  Country: US (occurrence: US)
  Receive Date: 20151223
  Receipt Date: 20151223
  Transmission Date: 20160305
  Serious: Yes (Hospitalization, Other)
  Sender: FDA-Public Use
  Company Number: US-PFIZER INC-2015440630

PATIENT
  Age: 48 Year
  Sex: Female
  Weight: 77 kg

DRUGS (3)
  1. NEURONTIN [Suspect]
     Active Substance: GABAPENTIN
     Indication: TRIGEMINAL NEURALGIA
     Dosage: UNK
     Dates: start: 200112
  2. NEURONTIN [Suspect]
     Active Substance: GABAPENTIN
     Dosage: UNK (DOSE WAS JUMPED UP, IT WAS NOT DONE INCREMENTALLY )
  3. NEURONTIN [Suspect]
     Active Substance: GABAPENTIN
     Dosage: UNK (DOSE WAS DECREASED)

REACTIONS (10)
  - Syncope [Recovering/Resolving]
  - Dizziness [Recovering/Resolving]
  - Malaise [Unknown]
  - Drug titration error [Unknown]
  - Oedema [Recovering/Resolving]
  - Drug ineffective for unapproved indication [Recovering/Resolving]
  - Weight increased [Unknown]
  - Nausea [Recovered/Resolved]
  - Meningioma [Unknown]
  - Peripheral swelling [Recovering/Resolving]

NARRATIVE: CASE EVENT DATE: 2002
